FAERS Safety Report 8143386-7 (Version None)
Quarter: 2012Q1

REPORT INFORMATION
  Report Type: 
  Country: None (occurrence: None)
  Receive Date: 20120217
  Receipt Date: 20120207
  Transmission Date: 20120608
  Serious: Yes (Hospitalization, Disabling)
  Sender: FDA-Public Use
  Company Number: DE-JNJFOC-20120204978

PATIENT
  Age: 70 Year
  Sex: Female

DRUGS (13)
  1. CALCIMAGON [Concomitant]
     Route: 065
  2. METAMIZOLE [Concomitant]
     Dosage: 30 DRP PRN
     Route: 065
  3. CITALOPRAM HYDROBROMIDE [Concomitant]
     Route: 065
  4. SPIRONOLACTONE [Concomitant]
     Route: 065
  5. SIMVASTATIN [Concomitant]
     Route: 065
  6. ASPIRIN [Concomitant]
     Route: 065
  7. CLOPIDOGREL [Concomitant]
     Route: 065
  8. REMICADE [Suspect]
     Indication: COLITIS
     Route: 042
     Dates: start: 20111001
  9. PREDNISOLONE [Concomitant]
     Route: 065
  10. TORSEMIDE [Concomitant]
     Route: 065
  11. XIPAMID [Concomitant]
     Route: 065
  12. PANTOPRAZOLE [Concomitant]
     Route: 065
  13. GLIMEPIRIDE [Concomitant]
     Route: 065

REACTIONS (2)
  - GANGRENE [None]
  - ANAEMIA [None]
